FAERS Safety Report 10027942 (Version 1)
Quarter: 2014Q1

REPORT INFORMATION
  Report Type: Spontaneous
  Country: US (occurrence: None)
  Receive Date: 20140225
  Receipt Date: 20140225
  Transmission Date: 20141002
  Serious: Yes (Hospitalization)
  Sender: FDA-Public Use
  Company Number: COL_15223_2014

PATIENT
  Age: 64 Year
  Sex: Male

DRUGS (2)
  1. PREVIDENT GEL RX VERY BERRY (SODIUM FLUORIDE 50MG/ML) [Suspect]
     Indication: PRODUCT USED FOR UNKNOWN INDICATION
     Dosage: SMALL AMMOUNT / NI /
     Route: 048
     Dates: start: 20130429
  2. HYDROXYZINE [Concomitant]

REACTIONS (9)
  - Salivary hypersecretion [None]
  - Choking [None]
  - Hyporeflexia [None]
  - Glossodynia [None]
  - Dysphonia [None]
  - Dysgeusia [None]
  - Dysgeusia [None]
  - Migraine [None]
  - Hypoaesthesia [None]
